FAERS Safety Report 7311694-5 (Version None)
Quarter: 2011Q1

REPORT INFORMATION
  Report Type: 
  Country: None (occurrence: None)
  Receive Date: 20110215
  Receipt Date: 20110215
  Transmission Date: 20110831
  Serious: Yes (Life-Threatening, Hospitalization)
  Sender: FDA-Public Use
  Company Number: None

PATIENT
  Sex: Male
  Weight: 129.2752 kg

DRUGS (1)
  1. TRI LYTE-SODIUM CHLORIDE, POTASSIUM CHLORIDE SODIUM BICARBONATE, PEG 3 [Suspect]
     Indication: COLONOSCOPY
     Dosage: 8 OZ UP TO 1/2 GAL. EVERY 10 MINUTES
     Dates: start: 20110117

REACTIONS (6)
  - THROAT TIGHTNESS [None]
  - RASH ERYTHEMATOUS [None]
  - DYSPHONIA [None]
  - SWELLING [None]
  - PRURITUS [None]
  - DYSPNOEA [None]
